FAERS Safety Report 13006205 (Version 4)
Quarter: 2017Q1

REPORT INFORMATION
  Report Type: Spontaneous
  Country: US (occurrence: US)
  Receive Date: 20161207
  Receipt Date: 20170314
  Transmission Date: 20170428
  Serious: Yes (Hospitalization)
  Sender: FDA-Public Use
  Company Number: US-SA-2016SA223254

PATIENT
  Age: 71 Year
  Sex: Female
  Weight: 107.9 kg

DRUGS (3)
  1. PRALUENT [Suspect]
     Active Substance: ALIROCUMAB
     Indication: TYPE IIA HYPERLIPIDAEMIA
     Route: 058
     Dates: start: 201607, end: 201702
  2. PRALUENT [Suspect]
     Active Substance: ALIROCUMAB
     Indication: TYPE IIA HYPERLIPIDAEMIA
     Route: 058
     Dates: start: 201607, end: 201702
  3. ALIROCUMAB PREFILLED PEN [Concomitant]
     Active Substance: ALIROCUMAB
     Indication: TYPE IIA HYPERLIPIDAEMIA
     Dates: start: 20160701

REACTIONS (7)
  - Influenza like illness [Unknown]
  - Vomiting [Unknown]
  - Pneumonia [Unknown]
  - Nausea [Unknown]
  - Cough [Unknown]
  - Product use issue [Unknown]
  - Asthma [Unknown]

NARRATIVE: CASE EVENT DATE: 201702
